FAERS Safety Report 24651712 (Version 1)
Quarter: 2024Q4

REPORT INFORMATION
  Report Type: Report from Study
  Country: GB (occurrence: GB)
  Receive Date: 20241122
  Receipt Date: 20241122
  Transmission Date: 20250115
  Serious: Yes (Death, Hospitalization, Other)
  Sender: SANDOZ
  Company Number: GB-SANDOZ-SDZ2024GB058448

PATIENT
  Sex: Female

DRUGS (1)
  1. HYRIMOZ [Suspect]
     Active Substance: ADALIMUMAB-ADAZ
     Indication: Rheumatoid arthritis
     Dosage: 40. MG, Q2W(EOW), PRE-FILLED PENS
     Route: 058

REACTIONS (2)
  - Death [Fatal]
  - Hospitalisation [Not Recovered/Not Resolved]
